FAERS Safety Report 19084657 (Version 2)
Quarter: 2021Q2

REPORT INFORMATION
  Report Type: Spontaneous
  Country: JP (occurrence: JP)
  Receive Date: 20210401
  Receipt Date: 20210416
  Transmission Date: 20210717
  Serious: Yes (Life-Threatening, Hospitalization, Disabling, Other)
  Sender: FDA-Public Use
  Company Number: JP-PFIZER INC-2021226152

PATIENT
  Age: 32 Year
  Sex: Female
  Weight: 67 kg

DRUGS (15)
  1. VIMPAT [Concomitant]
     Active Substance: LACOSAMIDE
     Indication: STATUS EPILEPTICUS
     Dosage: 200 MG, 2X/DAY
     Route: 042
     Dates: start: 202008
  2. MEROPENEM. [Concomitant]
     Active Substance: MEROPENEM
     Indication: SEPSIS
     Dosage: 1 G, 2X/DAY
     Route: 042
     Dates: start: 20200810
  3. MIDAZOLAM. [Concomitant]
     Active Substance: MIDAZOLAM
     Indication: ANAESTHESIA PROCEDURE
     Dosage: 10 MG/H
     Route: 065
     Dates: start: 20200809
  4. NOREPINEPHRINE. [Concomitant]
     Active Substance: NOREPINEPHRINE
     Indication: CARDIAC FAILURE
     Dosage: UNK (0.3 MCG/KG/MINUTE)
     Route: 042
     Dates: start: 20200809
  5. SOLACET F [Concomitant]
     Active Substance: CALCIUM CHLORIDE\POTASSIUM CHLORIDE\SODIUM ACETATE\SODIUM CHLORIDE
     Indication: CARDIAC FAILURE
     Dosage: 1500 ML, 3X/DAY
     Route: 042
     Dates: start: 202008
  6. HEPARIN [Concomitant]
     Active Substance: HEPARIN SODIUM
     Indication: RENAL FAILURE
     Dosage: 15000 IU, 1X/DAY
     Route: 042
     Dates: start: 20200810
  7. GLYCEOL [Concomitant]
     Active Substance: GLYCERIN
     Indication: BRAIN OEDEMA
     Dosage: 600 ML, 3X/DAY
     Route: 042
     Dates: start: 20200808, end: 20200811
  8. E KEPPRA [Concomitant]
     Active Substance: LEVETIRACETAM
     Indication: STATUS EPILEPTICUS
     Dosage: 3000 MG, 2X/DAY
     Route: 042
     Dates: start: 202008
  9. PROPOFOL. [Suspect]
     Active Substance: PROPOFOL
     Indication: STATUS EPILEPTICUS
     Dosage: 40 ML ((40 ML/HOUR) (20?30 ML/HOUR))
     Route: 042
     Dates: start: 20200809, end: 20200811
  10. VANCOMYCIN [Concomitant]
     Active Substance: VANCOMYCIN
     Indication: SEPSIS
     Dosage: 0.5?2 G, 24 HOURS
     Route: 042
     Dates: start: 20200810
  11. FENTANYL CITRATE. [Concomitant]
     Active Substance: FENTANYL CITRATE
     Indication: PAIN
     Dosage: 0.5 MG, 1X/DAY (0.5 MG/DAY )
     Route: 065
  12. INOVAN [DOPAMINE HYDROCHLORIDE] [Concomitant]
     Indication: CARDIAC FAILURE
     Dosage: 5 MCG/KG/MINUTE
     Route: 042
     Dates: start: 20200809
  13. FYCOMPA [Concomitant]
     Active Substance: PERAMPANEL
     Indication: STATUS EPILEPTICUS
     Dosage: 2 MG, 1X/DAY (TUBE FEEDING)
     Dates: start: 202008
  14. BISOLVON [BROMHEXINE HYDROCHLORIDE] [Concomitant]
     Indication: PNEUMONIA
     Dosage: 4 MG, 2X/DAY
     Route: 042
     Dates: start: 20200809
  15. PRECEDEX [Suspect]
     Active Substance: DEXMEDETOMIDINE HYDROCHLORIDE
     Indication: SEDATION
     Dosage: UNK
     Route: 065
     Dates: start: 20200809

REACTIONS (5)
  - Renal failure [Recovering/Resolving]
  - Rhabdomyolysis [Recovering/Resolving]
  - Blood creatine phosphokinase increased [Recovering/Resolving]
  - Drug ineffective [Unknown]
  - Intentional product use issue [Unknown]

NARRATIVE: CASE EVENT DATE: 20200814
